FAERS Safety Report 10785328 (Version 5)
Quarter: 2015Q3

REPORT INFORMATION
  Report Type: Spontaneous
  Country: US (occurrence: US)
  Receive Date: 20150211
  Receipt Date: 20150811
  Transmission Date: 20151125
  Serious: Yes (Hospitalization, Congenital Anomaly, Other)
  Sender: FDA-Public Use
  Company Number: US-APOTEX-2015AP006384

PATIENT
  Age: 8 Year
  Sex: Male

DRUGS (5)
  1. PAXIL [Suspect]
     Active Substance: PAROXETINE HYDROCHLORIDE
     Indication: BIPOLAR DISORDER
     Dosage: 25 MG, DAILY
     Route: 064
     Dates: start: 2005, end: 2006
  2. PAXIL CR [Suspect]
     Active Substance: PAROXETINE HYDROCHLORIDE
     Dosage: 12.5 MG, UNKNOWN
     Route: 064
     Dates: end: 200606
  3. GEODON [Suspect]
     Active Substance: ZIPRASIDONE HYDROCHLORIDE\ZIPRASIDONE MESYLATE
     Indication: PRODUCT USED FOR UNKNOWN INDICATION
     Dosage: 60 MG, QD
     Route: 064
  4. PAXIL CR [Suspect]
     Active Substance: PAROXETINE HYDROCHLORIDE
     Indication: BIPOLAR DISORDER
     Dosage: 37.5 MG, UNKNOWN
     Route: 064
     Dates: start: 200510, end: 200606
  5. PAXIL CR [Suspect]
     Active Substance: PAROXETINE HYDROCHLORIDE
     Indication: DEPRESSION
     Dosage: 25 MG, BID
     Route: 064
     Dates: end: 200606

REACTIONS (11)
  - Pneumonia [Unknown]
  - Ear infection [Unknown]
  - Costochondritis [Unknown]
  - Congenital epiglottal anomaly [Unknown]
  - Otitis media [Unknown]
  - Cleft palate [Unknown]
  - Cleft uvula [Unknown]
  - Sleep apnoea syndrome [Unknown]
  - Periorbital cellulitis [Unknown]
  - Meningitis borrelia [Unknown]
  - Foetal exposure during pregnancy [Unknown]

NARRATIVE: CASE EVENT DATE: 20060110
